FAERS Safety Report 20659715 (Version 1)
Quarter: 2022Q1

REPORT INFORMATION
  Report Type: Spontaneous
  Country: US (occurrence: US)
  Receive Date: 20220331
  Receipt Date: 20220331
  Transmission Date: 20220423
  Serious: No
  Sender: FDA-Public Use
  Company Number: US-INSUD PHARMA-2203US01212

PATIENT

DRUGS (1)
  1. VIENVA TM [Suspect]
     Active Substance: ETHINYL ESTRADIOL\LEVONORGESTREL
     Indication: Product used for unknown indication
     Dosage: UNKNOWN
     Route: 048

REACTIONS (5)
  - Dysmenorrhoea [Unknown]
  - Heavy menstrual bleeding [Unknown]
  - Oligomenorrhoea [Unknown]
  - Drug ineffective for unapproved indication [Unknown]
  - Suspected product quality issue [Unknown]
